FAERS Safety Report 4851930-8 (Version None)
Quarter: 2005Q4

REPORT INFORMATION
  Report Type: 
  Country: None (occurrence: None)
  Receive Date: 20051125
  Receipt Date: 20050919
  Transmission Date: 20060501
  Serious: Yes (Other)
  Sender: FDA-Public Use
  Company Number: US-JNJFOC-20050904587

PATIENT
  Age: 85 Year
  Sex: Female

DRUGS (4)
  1. LEVAQUIN [Suspect]
     Indication: PNEUMONIA
     Dosage: ORAL; 1 IN 1 DAY, ORAL; ORAL
     Route: 048
     Dates: start: 20050401
  2. LEVAQUIN [Suspect]
     Indication: PNEUMONIA
     Dosage: ORAL; 1 IN 1 DAY, ORAL; ORAL
     Route: 048
     Dates: start: 20050801
  3. LEVAQUIN [Suspect]
     Indication: PNEUMONIA
     Dosage: ORAL; 1 IN 1 DAY, ORAL; ORAL
     Route: 048
     Dates: start: 20050914
  4. HYTRIN [Concomitant]

REACTIONS (3)
  - BLOOD PRESSURE DECREASED [None]
  - DIZZINESS [None]
  - LOSS OF CONSCIOUSNESS [None]
